FAERS Safety Report 9901038 (Version 1)
Quarter: 2014Q1

REPORT INFORMATION
  Report Type: Report from Study
  Country: US (occurrence: US)
  Receive Date: 20140217
  Receipt Date: 20140217
  Transmission Date: 20141002
  Serious: No
  Sender: FDA-Public Use
  Company Number: US-ABBVIE-13P-163-1065498-00

PATIENT
  Sex: Female

DRUGS (7)
  1. SIMCOR 500/20 [Suspect]
     Indication: BLOOD CHOLESTEROL INCREASED
     Dosage: 500/20 AT BEDTIME
     Dates: start: 20130316
  2. GLUCOSAMINE + CHONDROITIN [Concomitant]
     Indication: PRODUCT USED FOR UNKNOWN INDICATION
  3. CRANBERRY EXTRACT [Concomitant]
     Indication: PRODUCT USED FOR UNKNOWN INDICATION
  4. METAMUCIL [Concomitant]
     Indication: PRODUCT USED FOR UNKNOWN INDICATION
  5. GREEN COFFEE BEAN EXTRACT [Concomitant]
     Indication: PRODUCT USED FOR UNKNOWN INDICATION
  6. GNC WOMEN^S MEGA PLUS (HAS 50MG OF NIACIN) [Concomitant]
     Indication: PRODUCT USED FOR UNKNOWN INDICATION
  7. EXCEDRIN [Concomitant]
     Indication: MIGRAINE

REACTIONS (3)
  - Lethargy [Not Recovered/Not Resolved]
  - Fatigue [Not Recovered/Not Resolved]
  - Ear discomfort [Recovered/Resolved]
